FAERS Safety Report 10691256 (Version 3)
Quarter: 2015Q1

REPORT INFORMATION
  Report Type: Spontaneous
  Country: FR (occurrence: FR)
  Receive Date: 20150105
  Receipt Date: 20150203
  Transmission Date: 20150720
  Serious: Yes (Death)
  Sender: FDA-Public Use
  Company Number: FR-GE HEALTHCARE MEDICAL DIAGNOSTICS-VISP-PR-1412S-0560

PATIENT
  Age: 47 Year
  Sex: Male

DRUGS (4)
  1. VISIPAQUE [Suspect]
     Active Substance: IODIXANOL
     Indication: DIAGNOSTIC PROCEDURE
  2. VISIPAQUE [Suspect]
     Active Substance: IODIXANOL
     Indication: HEPATIC MASS
     Dates: start: 20141215, end: 20141215
  3. LASILIX [Concomitant]
     Active Substance: FUROSEMIDE
  4. COLCHIMAX [Concomitant]
     Active Substance: COLCHICINE\DICYCLOMINE HYDROCHLORIDE

REACTIONS (3)
  - Cardiac arrest [None]
  - Anaphylactic shock [Fatal]
  - Seizure [None]

NARRATIVE: CASE EVENT DATE: 20141215
